FAERS Safety Report 20489105 (Version 1)
Quarter: 2022Q1

REPORT INFORMATION
  Report Type: Report from Study
  Country: CN (occurrence: CN)
  Receive Date: 20220218
  Receipt Date: 20220218
  Transmission Date: 20220423
  Serious: Yes (Hospitalization)
  Sender: FDA-Public Use
  Company Number: CN-SA-2019SA138346

PATIENT
  Age: 68 Year
  Sex: Male
  Weight: 58 kg

DRUGS (36)
  1. ISATUXIMAB [Suspect]
     Active Substance: ISATUXIMAB
     Indication: Plasma cell myeloma
     Dosage: 10 MG/KG, QOW
     Route: 042
     Dates: start: 20190510, end: 20190510
  2. ISATUXIMAB [Suspect]
     Active Substance: ISATUXIMAB
     Dosage: 10 MG/KG, QW
     Route: 042
     Dates: start: 20190322, end: 20190322
  3. BORTEZOMIB [Suspect]
     Active Substance: BORTEZOMIB
     Indication: Plasma cell myeloma
     Dosage: 1.3 MG/M2, OTHER (DAYS 1, 4, 8, 11 AND DAYS 22, 25, 29, 32)
     Route: 058
     Dates: start: 20190513, end: 20190513
  4. BORTEZOMIB [Suspect]
     Active Substance: BORTEZOMIB
     Dosage: 1.3 MG/M2, OTHER (DAYS 1, 4, 8, 11 AND DAYS 22, 25, 29, 32)
     Route: 058
     Dates: start: 20190322, end: 20190322
  5. LENALIDOMIDE [Suspect]
     Active Substance: LENALIDOMIDE
     Indication: Plasma cell myeloma
     Dosage: 25 MG, QD
     Route: 048
     Dates: start: 20190503, end: 20190516
  6. LENALIDOMIDE [Suspect]
     Active Substance: LENALIDOMIDE
     Dosage: 25 MG, QD
     Route: 048
     Dates: start: 20190322, end: 20190328
  7. DEXAMETHASONE [Suspect]
     Active Substance: DEXAMETHASONE
     Indication: Plasma cell myeloma
     Dosage: 20 MG, DAYS 1, 2, 4, 5, 8, 9, 11, 12, 15, 22, 23, 25, 26, 29, 30, 32, AND 33
     Route: 048
     Dates: start: 20190514, end: 20190514
  8. DEXAMETHASONE [Suspect]
     Active Substance: DEXAMETHASONE
     Dosage: 20 MG, QW
     Route: 042
     Dates: start: 20190322, end: 20190322
  9. ALLOPURINOL [Concomitant]
     Active Substance: ALLOPURINOL
     Indication: Prophylaxis
     Dosage: UNK
     Route: 048
     Dates: start: 20190503, end: 20190521
  10. VALACYCLOVIR HYDROCHLORIDE [Concomitant]
     Active Substance: VALACYCLOVIR HYDROCHLORIDE
     Indication: Prophylaxis
     Dosage: UNK
     Route: 048
     Dates: start: 20190503, end: 20190521
  11. TORSEMIDE [Concomitant]
     Active Substance: TORSEMIDE
     Dosage: UNK UNK, UNK
     Route: 042
     Dates: start: 20190508, end: 20190510
  12. SPIRONOLACTONE [Concomitant]
     Active Substance: SPIRONOLACTONE
     Dosage: UNK UNK, UNK
     Route: 048
     Dates: start: 20190507, end: 20190509
  13. MU DAN KE LI [Concomitant]
     Indication: Prophylaxis
     Dosage: UNK UNK, UNK
     Route: 048
     Dates: start: 20190322, end: 20190606
  14. ASPIRIN [Concomitant]
     Active Substance: ASPIRIN
     Indication: Prophylaxis
     Dosage: UNK UNK, UNK
     Route: 048
     Dates: start: 20190503, end: 20190513
  15. DIISOPROPYLAMINE DICHLOROACETATE [Concomitant]
     Indication: Prophylaxis
     Dosage: UNK UNK, UNK
     Route: 042
     Dates: start: 20190503, end: 20190506
  16. DIISOPROPYLAMINE DICHLOROACETATE [Concomitant]
     Dosage: UNK UNK, UNK
     Route: 042
     Dates: start: 20190510, end: 20190513
  17. PANTOPRAZOLE SODIUM [Concomitant]
     Active Substance: PANTOPRAZOLE SODIUM
     Indication: Prophylaxis
     Dosage: 80 MG, 1X
     Route: 042
     Dates: start: 20190503, end: 20190504
  18. PANTOPRAZOLE SODIUM [Concomitant]
     Active Substance: PANTOPRAZOLE SODIUM
     Dosage: 80 MG, QD
     Route: 042
     Dates: start: 20190510, end: 20190513
  19. PANTOPRAZOLE SODIUM [Concomitant]
     Active Substance: PANTOPRAZOLE SODIUM
     Dosage: UNK
     Route: 042
     Dates: start: 20190504, end: 20190506
  20. NEUROTROPIN [CYANOCOBALAMIN;LIDOCAINE HYDROCHLORIDE;PYRIDOXINE HYDROCH [Concomitant]
     Indication: Prophylaxis
     Dosage: 8 U, BID
     Route: 048
     Dates: start: 20190501, end: 20190521
  21. METHYLCOBALAMIN [Concomitant]
     Active Substance: METHYLCOBALAMIN
     Indication: Prophylaxis
     Dosage: UNK, UNK
     Route: 048
     Dates: start: 20190501, end: 20190521
  22. FLUCONAZOLE [Concomitant]
     Active Substance: FLUCONAZOLE
     Indication: Prophylaxis
     Dosage: UNK UNK, UNK
     Route: 048
     Dates: start: 20190503, end: 20190521
  23. BUDESONIDE [Concomitant]
     Active Substance: BUDESONIDE
     Dosage: UNK
     Route: 045
     Dates: start: 20190514, end: 20190516
  24. IPRATROPIUM BROMIDE [Concomitant]
     Active Substance: IPRATROPIUM BROMIDE
     Dosage: UNK, UNK
     Route: 045
     Dates: start: 20190514, end: 20190516
  25. CALCIUM CARBONATE\CHOLECALCIFEROL [Concomitant]
     Active Substance: CALCIUM CARBONATE\CHOLECALCIFEROL
     Dosage: UNK UNK, UNK
     Route: 048
     Dates: start: 20190515, end: 20190521
  26. CALCITRIOL [Concomitant]
     Active Substance: CALCITRIOL
     Indication: Prophylaxis
     Dosage: UNK, UNK
     Route: 048
     Dates: start: 20190515, end: 20190521
  27. LACTULOSE [Concomitant]
     Active Substance: LACTULOSE
     Dosage: UNK, UNK
     Route: 048
     Dates: start: 20190520, end: 20190521
  28. GLYCERIN [Concomitant]
     Active Substance: GLYCERIN
     Dosage: UNK
     Route: 054
     Dates: start: 20190516, end: 20190516
  29. ITOPRIDE HYDROCHLORIDE [Concomitant]
     Active Substance: ITOPRIDE HYDROCHLORIDE
     Dosage: UNK
     Route: 048
     Dates: start: 20190517, end: 20190521
  30. ETHAMSYLATE [Concomitant]
     Active Substance: ETHAMSYLATE
     Dosage: UNK
     Route: 042
     Dates: start: 20190517, end: 20190520
  31. FUROSEMIDE [Concomitant]
     Active Substance: FUROSEMIDE
     Dosage: 20 MG, QD
     Route: 042
     Dates: start: 20190516, end: 20190516
  32. IBUPROFEN [Concomitant]
     Active Substance: IBUPROFEN
     Dosage: UNK, UNK
     Route: 048
     Dates: start: 20190517, end: 20190517
  33. BIAPENEM [Concomitant]
     Active Substance: BIAPENEM
     Dosage: UNK, UNK
     Route: 042
     Dates: start: 20190519, end: 20190521
  34. SESAME OIL [Concomitant]
     Active Substance: SESAME OIL
     Dosage: UNK UNK, UNK
     Route: 048
     Dates: start: 20190516, end: 20190516
  35. CEFTAZIDIME [Concomitant]
     Active Substance: CEFTAZIDIME
     Dosage: UNK
     Route: 042
     Dates: start: 20190518, end: 20190519
  36. PLATELETS [Concomitant]
     Active Substance: HUMAN PLATELET, ALLOGENIC
     Dosage: UNK UNK, UNK
     Route: 042
     Dates: start: 20190517, end: 20190517

REACTIONS (3)
  - Pneumonia [Recovered/Resolved]
  - Intestinal obstruction [Recovered/Resolved]
  - Thrombocytopenia [Recovered/Resolved]

NARRATIVE: CASE EVENT DATE: 20190515
